FAERS Safety Report 16596322 (Version 1)
Quarter: 2019Q3

REPORT INFORMATION
  Report Type: Spontaneous
  Country: DE (occurrence: DE)
  Receive Date: 20190719
  Receipt Date: 20190719
  Transmission Date: 20191004
  Serious: Yes (Other)
  Sender: FDA-Public Use
  Company Number: DE-AUROBINDO-AUR-APL-2019-036383

PATIENT

DRUGS (7)
  1. CEFPODOXIME [Suspect]
     Active Substance: CEFPODOXIME
     Indication: TRACHEITIS
     Dosage: UNK
     Route: 048
     Dates: start: 20130319
  2. CEFUROXIME. [Suspect]
     Active Substance: CEFUROXIME
     Indication: TRACHEITIS
     Dosage: 1 DOSAGE FORM, TWO TIMES A DAY, 2X1
     Route: 048
     Dates: start: 20130129
  3. CEFIXIME. [Suspect]
     Active Substance: CEFIXIME
     Indication: LARYNGITIS
  4. CEFUROXIME. [Suspect]
     Active Substance: CEFUROXIME
     Indication: LARYNGITIS
     Dosage: UNK
     Route: 048
     Dates: start: 20130322
  5. CEFIXIME. [Suspect]
     Active Substance: CEFIXIME
     Indication: TRACHEITIS
     Dosage: UNK UNK, ONCE A DAY
     Route: 065
     Dates: start: 20121211
  6. CEFPODOXIME [Suspect]
     Active Substance: CEFPODOXIME
     Indication: LARYNGITIS
  7. CEFUROXIME. [Suspect]
     Active Substance: CEFUROXIME
     Indication: INFLUENZA
     Dosage: 1 DOSAGE FORM, TWO TIMES A DAY 2X1
     Route: 048
     Dates: start: 20130218

REACTIONS (23)
  - Gait disturbance [Not Recovered/Not Resolved]
  - Dental discomfort [Unknown]
  - Photopsia [Not Recovered/Not Resolved]
  - Retinal injury [Not Recovered/Not Resolved]
  - Appetite disorder [Recovering/Resolving]
  - Depression [Not Recovered/Not Resolved]
  - Visual impairment [Not Recovered/Not Resolved]
  - Weight decreased [Recovering/Resolving]
  - Toothache [Unknown]
  - Rash generalised [Unknown]
  - Adverse reaction [Not Recovered/Not Resolved]
  - Muscular weakness [Not Recovered/Not Resolved]
  - Parosmia [Not Recovered/Not Resolved]
  - Memory impairment [Not Recovered/Not Resolved]
  - Auditory disorder [Not Recovered/Not Resolved]
  - Fine motor skill dysfunction [Not Recovered/Not Resolved]
  - Arthralgia [Not Recovered/Not Resolved]
  - Taste disorder [Not Recovered/Not Resolved]
  - Impaired work ability [Not Recovered/Not Resolved]
  - Feeling abnormal [Unknown]
  - Hyperaesthesia [Unknown]
  - Myalgia [Not Recovered/Not Resolved]
  - Pain [Unknown]

NARRATIVE: CASE EVENT DATE: 2013
